FAERS Safety Report 10413431 (Version 1)
Quarter: 2014Q3

REPORT INFORMATION
  Report Type: Report from Study
  Country: US (occurrence: US)
  Receive Date: 20140827
  Receipt Date: 20140827
  Transmission Date: 20150326
  Serious: Yes (Other)
  Sender: FDA-Public Use
  Company Number: US-GLAXOSMITHKLINE-B1027027A

PATIENT
  Sex: Female

DRUGS (2)
  1. TOPOTECAN [Suspect]
     Active Substance: TOPOTECAN\TOPOTECAN HYDROCHLORIDE
     Indication: OVARIAN CANCER
     Dosage: 4MGM2 PER DAY
     Route: 065
  2. TREBANANIB [Suspect]
     Active Substance: TREBANANIB
     Indication: OVARIAN CANCER
     Route: 065

REACTIONS (1)
  - Oedema peripheral [Unknown]
